FAERS Safety Report 23847066 (Version 2)
Quarter: 2024Q2

REPORT INFORMATION
  Report Type: Spontaneous
  Country: US (occurrence: US)
  Receive Date: 20240513
  Receipt Date: 20240521
  Transmission Date: 20240716
  Serious: Yes (Other)
  Sender: FDA-Public Use
  Company Number: US-SANOFI-02042798

PATIENT
  Age: 57 Year
  Sex: Female

DRUGS (2)
  1. DUPIXENT [Suspect]
     Active Substance: DUPILUMAB
     Indication: Nasal polyps
     Dosage: UNK, DISCONTINUED DUPILUMAB FOR NO MORE THAN 8 WEEKS
  2. DUPIXENT [Suspect]
     Active Substance: DUPILUMAB
     Dosage: UNK, COMPLETELY DISCONTINUED

REACTIONS (6)
  - Neuropathy peripheral [Unknown]
  - Sciatica [Not Recovered/Not Resolved]
  - Gait inability [Not Recovered/Not Resolved]
  - Nasal polyps [Unknown]
  - Condition aggravated [Unknown]
  - Arthralgia [Unknown]
